FAERS Safety Report 7903696-2 (Version None)
Quarter: 2011Q4

REPORT INFORMATION
  Report Type: 
  Country: None (occurrence: None)
  Receive Date: 20111109
  Receipt Date: 20111031
  Transmission Date: 20120403
  Serious: Yes (Hospitalization, Other)
  Sender: FDA-Public Use
  Company Number: US-JNJFOC-20111101170

PATIENT
  Age: 19 Year
  Sex: Male
  Weight: 65.8 kg

DRUGS (12)
  1. DOXORUBICIN HCL [Suspect]
     Route: 042
     Dates: start: 20111013
  2. IFOSFAMIDE [Suspect]
     Indication: BONE SARCOMA
     Route: 065
     Dates: start: 20111013, end: 20111017
  3. METHOTREXATE [Suspect]
     Route: 065
     Dates: start: 20111013
  4. MESNA [Suspect]
     Route: 065
     Dates: start: 20111013, end: 20111017
  5. DOXORUBICIN HCL [Suspect]
     Indication: BONE SARCOMA
     Route: 042
     Dates: start: 20110603
  6. ETOPOSIDE [Suspect]
     Route: 065
     Dates: start: 20110603
  7. IFOSFAMIDE [Suspect]
     Route: 065
     Dates: start: 20110603
  8. CISPLATIN [Suspect]
     Indication: BONE SARCOMA
     Route: 065
     Dates: start: 20110603
  9. MESNA [Suspect]
     Indication: BONE SARCOMA
     Route: 065
     Dates: start: 20110603
  10. METHOTREXATE [Suspect]
     Indication: BONE SARCOMA
     Route: 065
     Dates: start: 20110603
  11. ETOPOSIDE [Suspect]
     Indication: BONE SARCOMA
     Route: 065
     Dates: start: 20111013, end: 20111017
  12. CISPLATIN [Suspect]
     Route: 065
     Dates: start: 20111013

REACTIONS (4)
  - HYPOKALAEMIA [None]
  - HYPOTENSION [None]
  - FEBRILE NEUTROPENIA [None]
  - LUNG INFECTION [None]
